FAERS Safety Report 24761845 (Version 2)
Quarter: 2025Q3

REPORT INFORMATION
  Report Type: Spontaneous
  Country: US (occurrence: US)
  Receive Date: 20241221
  Receipt Date: 20250810
  Transmission Date: 20251021
  Serious: Yes (Death, Other)
  Sender: ALEXION PHARMACEUTICALS
  Company Number: US-ASTRAZENECA-202412USA016463US

PATIENT
  Age: 57 Year
  Sex: Male

DRUGS (5)
  1. SEROQUEL [Suspect]
     Active Substance: QUETIAPINE FUMARATE
  2. ESCITALOPRAM [Suspect]
     Active Substance: ESCITALOPRAM OXALATE
  3. IBUPROFEN [Suspect]
     Active Substance: IBUPROFEN
  4. TRAZODONE [Suspect]
     Active Substance: TRAZODONE HYDROCHLORIDE
  5. LITHIUM [Suspect]
     Active Substance: LITHIUM

REACTIONS (2)
  - Toxicity to various agents [Fatal]
  - Completed suicide [Fatal]
